FAERS Safety Report 5690311-4 (Version None)
Quarter: 2008Q2

REPORT INFORMATION
  Report Type: 
  Country: None (occurrence: None)
  Receive Date: 20080401
  Receipt Date: 20011008
  Transmission Date: 20081010
  Serious: Yes (Death, Other)
  Sender: FDA-Public Use
  Company Number: US-ROCHE-269628

PATIENT
  Age: 28 Year
  Sex: Male
  Weight: 88.5 kg

DRUGS (3)
  1. XELODA [Suspect]
     Dosage: TWO WEEKS TREATMENT AND ONE WEEK REST
     Route: 065
     Dates: start: 20010419, end: 20010712
  2. FLUOROURACIL [Concomitant]
     Dates: start: 20010712
  3. LEUCOVORIN CALCIUM [Concomitant]
     Dates: start: 20010712

REACTIONS (2)
  - BLOOD BILIRUBIN INCREASED [None]
  - DEATH [None]
